FAERS Safety Report 21337347 (Version 1)
Quarter: 2022Q3

REPORT INFORMATION
  Report Type: Spontaneous
  Country: PT (occurrence: PT)
  Receive Date: 20220915
  Receipt Date: 20220915
  Transmission Date: 20221026
  Serious: Yes (Other)
  Sender: FDA-Public Use
  Company Number: None

PATIENT
  Age: 50 Year
  Sex: Female

DRUGS (1)
  1. AMOXICILLIN\CLAVULANIC ACID [Suspect]
     Active Substance: AMOXICILLIN\CLAVULANIC ACID
     Indication: Dental disorder prophylaxis
     Dosage: UNK
     Route: 048
     Dates: start: 201907

REACTIONS (6)
  - Angioedema [Recovered/Resolved]
  - Tongue oedema [Recovered/Resolved]
  - Rash maculo-papular [Recovered/Resolved]
  - Oropharyngeal discomfort [Recovered/Resolved]
  - Rash [Recovered/Resolved]
  - Rash [Recovered/Resolved]

NARRATIVE: CASE EVENT DATE: 20190701
